FAERS Safety Report 4672942-3 (Version None)
Quarter: 2005Q2

REPORT INFORMATION
  Report Type: 
  Country: None (occurrence: None)
  Receive Date: 20050523
  Receipt Date: 20050509
  Transmission Date: 20051028
  Serious: Yes (Death)
  Sender: FDA-Public Use
  Company Number: 0500057EN0020P

PATIENT
  Age: 3 Year
  Sex: Male
  Weight: 14 kg

DRUGS (5)
  1. ONCASPAR [Suspect]
     Indication: ACUTE LYMPHOCYTIC LEUKAEMIA
     Dosage: 1475 IU IM
     Route: 030
     Dates: start: 20020625, end: 20020625
  2. VINCRISTINE [Suspect]
     Indication: ACUTE LYMPHOCYTIC LEUKAEMIA
     Dosage: 0.9 MG Q7DAY
     Dates: start: 20020622, end: 20020705
  3. DEXAMETHASONE [Suspect]
     Indication: ACUTE LYMPHOCYTIC LEUKAEMIA
     Dosage: 3.5 MG QD
     Dates: start: 20020622, end: 20020705
  4. CYTARABINE [Suspect]
     Indication: ACUTE LYMPHOCYTIC LEUKAEMIA
     Dosage: 50 MG IT
     Route: 038
     Dates: start: 20020622, end: 20020622
  5. METHOTREXATE [Suspect]
     Indication: ACUTE LYMPHOCYTIC LEUKAEMIA
     Dosage: 10 MG IT Q7DAYS
     Route: 038
     Dates: start: 20020629, end: 20020629

REACTIONS (6)
  - BACILLUS INFECTION [None]
  - BLOOD CULTURE POSITIVE [None]
  - DISEASE PROGRESSION [None]
  - PULMONARY HAEMORRHAGE [None]
  - SEPSIS [None]
  - STAPHYLOCOCCAL INFECTION [None]
